FAERS Safety Report 10094562 (Version 3)
Quarter: 2014Q2

REPORT INFORMATION
  Report Type: Spontaneous
  Country: US (occurrence: US)
  Receive Date: 20140422
  Receipt Date: 20140606
  Transmission Date: 20141212
  Serious: Yes (Hospitalization, Other)
  Sender: FDA-Public Use
  Company Number: US-SA-2014SA050878

PATIENT
  Age: 51 Year
  Sex: Male

DRUGS (4)
  1. FABRAZYME [Suspect]
     Indication: FABRY^S DISEASE
     Route: 042
     Dates: start: 20030710
  2. FABRAZYME [Suspect]
     Indication: FABRY^S DISEASE
     Route: 042
     Dates: start: 20030710
  3. ACETAMINOPHEN [Concomitant]
     Indication: PREMEDICATION
  4. LORATADINE [Concomitant]
     Indication: PREMEDICATION

REACTIONS (6)
  - Arrhythmia [Unknown]
  - Cardiac function test abnormal [Not Recovered/Not Resolved]
  - Cerebrovascular accident [Unknown]
  - Cerebral haemorrhage [Unknown]
  - Loss of consciousness [Unknown]
  - Hypoaesthesia [Unknown]
